FAERS Safety Report 7641958-7 (Version None)
Quarter: 2011Q3

REPORT INFORMATION
  Report Type: 
  Country: None (occurrence: None)
  Receive Date: 20110728
  Receipt Date: 20110719
  Transmission Date: 20111222
  Serious: Yes (Hospitalization)
  Sender: FDA-Public Use
  Company Number: US-JNJFOC-20110710103

PATIENT
  Sex: Male
  Weight: 73.1 kg

DRUGS (12)
  1. SINGULAIR [Concomitant]
  2. AZATHIOPRINE [Concomitant]
  3. TRIBENZOR [Concomitant]
  4. ALBUTEROL SULFATE AUTOHALER [Concomitant]
  5. AMLODIPINE BESYLATE [Concomitant]
  6. POTASSIUM CHLORIDE [Concomitant]
  7. INFLIXIMAB, RECOMBINANT [Suspect]
     Route: 042
     Dates: start: 20110531
  8. OMEPRAZOLE [Concomitant]
  9. LOSARTAN POTASSIUM [Concomitant]
  10. INFLIXIMAB, RECOMBINANT [Suspect]
     Indication: INFLAMMATORY BOWEL DISEASE
     Route: 042
     Dates: start: 20091006
  11. ADVAIR DISKUS 100/50 [Concomitant]
  12. HYDROCHLOROTHIAZIDE [Concomitant]

REACTIONS (2)
  - HYPERTENSION [None]
  - CYCLIC VOMITING SYNDROME [None]
